FAERS Safety Report 6678765-8 (Version None)
Quarter: 2010Q2

REPORT INFORMATION
  Report Type: 
  Country: None (occurrence: None)
  Receive Date: 20100412
  Receipt Date: 20100412
  Transmission Date: 20101027
  Serious: Yes (Death, Life-Threatening, Hospitalization)
  Sender: FDA-Public Use
  Company Number: None

PATIENT
  Age: 68 Year
  Sex: Female
  Weight: 90.7 kg

DRUGS (2)
  1. TAXOL [Suspect]
  2. ASPIRIN [Concomitant]

REACTIONS (10)
  - ATELECTASIS [None]
  - BRADYCARDIA [None]
  - CEREBRAL HAEMORRHAGE [None]
  - CHEST PAIN [None]
  - DELIRIUM [None]
  - DEPRESSED LEVEL OF CONSCIOUSNESS [None]
  - GLOMERULAR FILTRATION RATE DECREASED [None]
  - STENT PLACEMENT [None]
  - UNRESPONSIVE TO STIMULI [None]
  - VASOGENIC CEREBRAL OEDEMA [None]
